FAERS Safety Report 5346919-9 (Version None)
Quarter: 2007Q2

REPORT INFORMATION
  Report Type: 
  Country: None (occurrence: None)
  Receive Date: 20070426
  Receipt Date: 20070215
  Transmission Date: 20071010
  Serious: No
  Sender: FDA-Public Use
  Company Number: 2007-BP-02334BP

PATIENT
  Sex: Male

DRUGS (1)
  1. APTIVUS [Suspect]
     Dosage: 250 MG/100MG

REACTIONS (1)
  - RENAL DISORDER [None]
